FAERS Safety Report 23167487 (Version 1)
Quarter: 2023Q4

REPORT INFORMATION
  Report Type: Spontaneous
  Country: US (occurrence: US)
  Receive Date: 20231109
  Receipt Date: 20231109
  Transmission Date: 20240110
  Serious: No
  Sender: FDA-Public Use
  Company Number: US-SA-SAC20231102000783

PATIENT
  Sex: Female
  Weight: 77 kg

DRUGS (10)
  1. DUPIXENT [Suspect]
     Active Substance: DUPILUMAB
     Indication: Dermatitis atopic
     Dosage: 300 MG, QOW
     Route: 058
  2. INSULIN GLARGINE [Concomitant]
     Active Substance: INSULIN GLARGINE
  3. TACROLIMUS [Concomitant]
     Active Substance: TACROLIMUS
  4. HERBALS\PLANTAGO OVATA SEED COAT [Concomitant]
     Active Substance: HERBALS\PLANTAGO OVATA SEED COAT
  5. OMEPRAZOLE [Concomitant]
     Active Substance: OMEPRAZOLE
  6. NIFEDIPINE [Concomitant]
     Active Substance: NIFEDIPINE
  7. CALCIUM ACETATE [Concomitant]
     Active Substance: CALCIUM ACETATE
  8. ATORVASTATIN CALCIUM [Concomitant]
     Active Substance: ATORVASTATIN CALCIUM
  9. ACETAMINOPHEN [Concomitant]
     Active Substance: ACETAMINOPHEN
  10. FUROSEMIDE [Concomitant]
     Active Substance: FUROSEMIDE

REACTIONS (2)
  - Lacrimation increased [Not Recovered/Not Resolved]
  - Injection site pain [Not Recovered/Not Resolved]
